FAERS Safety Report 13962360 (Version 3)
Quarter: 2019Q2

REPORT INFORMATION
  Report Type: Spontaneous
  Country: GB (occurrence: GB)
  Receive Date: 20170912
  Receipt Date: 20190520
  Transmission Date: 20190711
  Serious: Yes (Death, Hospitalization)
  Sender: FDA-Public Use
  Company Number: GB-MYLANLABS-2017M1046419

PATIENT
  Age: 69 Year
  Sex: Female

DRUGS (3)
  1. CLOZARIL [Suspect]
     Active Substance: CLOZAPINE
     Indication: SCHIZOPHRENIA
     Dosage: 75 MILLIGRAM, QD
     Route: 048
     Dates: start: 20160505
  2. LITHIUM. [Suspect]
     Active Substance: LITHIUM
     Indication: BLOOD COUNT ABNORMAL
     Dosage: 600 MILLIGRAM, QD
     Route: 048
     Dates: start: 201707
  3. SERTRALINE [Concomitant]
     Active Substance: SERTRALINE HYDROCHLORIDE
     Indication: DEPRESSION
     Dosage: 200 MG, QD
     Route: 048

REACTIONS (5)
  - Blood test abnormal [Recovered/Resolved]
  - Nasopharyngitis [Recovered/Resolved]
  - Feeling abnormal [Recovering/Resolving]
  - Cardiac disorder [Fatal]
  - Hospitalisation [Unknown]

NARRATIVE: CASE EVENT DATE: 2016
